FAERS Safety Report 7180523-5 (Version None)
Quarter: 2010Q4

REPORT INFORMATION
  Report Type: 
  Country: None (occurrence: None)
  Receive Date: 20101221
  Receipt Date: 20101209
  Transmission Date: 20110411
  Serious: Yes (Hospitalization)
  Sender: FDA-Public Use
  Company Number: ES-ELI_LILLY_AND_COMPANY-ES201012002435

PATIENT
  Sex: Female
  Weight: 70 kg

DRUGS (7)
  1. FORTEO [Suspect]
     Indication: OSTEOPOROSIS
     Dosage: 20 UG, DAILY (1/D)
     Route: 058
     Dates: start: 20100609
  2. SEROQUEL [Concomitant]
     Indication: DEPRESSION
     Dosage: 100 MG, DAILY (1/D)
     Route: 048
  3. KEPPRA [Concomitant]
     Indication: CONVULSION
     Dosage: 500 MG, EVERY 12 HOURS
     Route: 048
  4. ADIRO [Concomitant]
     Indication: CEREBRAL ISCHAEMIA
     Dosage: 100 MG, DAILY (1/D)
     Route: 048
  5. ADOLONTA [Concomitant]
     Indication: PAIN
     Dosage: UNK, AS NEEDED
     Route: 048
  6. IBUPROFEN [Concomitant]
     Indication: PAIN
     Dosage: UNK, AS NEEDED
     Route: 048
  7. TRANKIMAZIN [Concomitant]
     Indication: AFRICAN TRYPANOSOMIASIS
     Dosage: 2 MG, DAILY (1/D)
     Route: 048

REACTIONS (2)
  - CEREBRAL INFARCTION [None]
  - TRANSAMINASES ABNORMAL [None]
